FAERS Safety Report 13962447 (Version 1)
Quarter: 2017Q3

REPORT INFORMATION
  Report Type: Report from Study
  Country: None (occurrence: BE)
  Receive Date: 20170913
  Receipt Date: 20170913
  Transmission Date: 20171128
  Serious: Yes (Hospitalization)
  Sender: FDA-Public Use
  Company Number: BE-ABBVIE-16P-013-1615568-00

PATIENT
  Sex: Male

DRUGS (12)
  1. DUODOPA [Suspect]
     Active Substance: CARBIDOPA\LEVODOPA
     Indication: PARKINSON^S DISEASE
     Dosage: AM = 12 ML; CD= 5 ML/H DURING 16 HRS; ED = 5 ML
     Route: 050
     Dates: start: 20150323, end: 20150327
  2. DUODOPA [Suspect]
     Active Substance: CARBIDOPA\LEVODOPA
     Dosage: DOSES CONTINUOUSLY MONITORED AND ADAPTED
     Route: 050
     Dates: start: 20150327, end: 20151209
  3. INDAPAMIDE EG [Concomitant]
     Indication: PRODUCT USED FOR UNKNOWN INDICATION
  4. SIPRALEXA [Concomitant]
     Active Substance: ESCITALOPRAM OXALATE
     Indication: PRODUCT USED FOR UNKNOWN INDICATION
  5. REQUIP [Concomitant]
     Active Substance: ROPINIROLE HYDROCHLORIDE
     Indication: PRODUCT USED FOR UNKNOWN INDICATION
  6. DUODOPA [Suspect]
     Active Substance: CARBIDOPA\LEVODOPA
     Dosage: AM= 8 ML; CD = 7.3 ML/H DURING 16 HRS; ND= 3.6 ML/H DURING 8 HRS; ED=6 ML
     Route: 050
     Dates: start: 20151209, end: 20160520
  7. DUODOPA [Suspect]
     Active Substance: CARBIDOPA\LEVODOPA
     Dosage: DOSE DECREASED
     Route: 050
  8. CRESTOR [Concomitant]
     Active Substance: ROSUVASTATIN CALCIUM
     Indication: PRODUCT USED FOR UNKNOWN INDICATION
  9. MOXONIDINE EG [Concomitant]
     Indication: PRODUCT USED FOR UNKNOWN INDICATION
  10. NOBITEN [Concomitant]
     Active Substance: NEBIVOLOL
     Indication: PRODUCT USED FOR UNKNOWN INDICATION
  11. DUODOPA [Suspect]
     Active Substance: CARBIDOPA\LEVODOPA
     Dosage: AM=8ML, CD=6.4ML/HR DURING 16HRS, ED=6ML, ND=3.4ML/HR DURING 8HRS
     Route: 050
     Dates: start: 20160520, end: 2016
  12. ZESTRIL [Concomitant]
     Active Substance: LISINOPRIL
     Indication: PRODUCT USED FOR UNKNOWN INDICATION

REACTIONS (3)
  - Stoma site hypergranulation [Recovered/Resolved]
  - Polyneuropathy [Not Recovered/Not Resolved]
  - Deep brain stimulation [Unknown]
